FAERS Safety Report 14594056 (Version 6)
Quarter: 2018Q3

REPORT INFORMATION
  Report Type: Spontaneous
  Country: ES (occurrence: ES)
  Receive Date: 20180302
  Receipt Date: 20180731
  Transmission Date: 20181010
  Serious: Yes (Hospitalization, Other)
  Sender: FDA-Public Use
  Company Number: ES-VALIDUS PHARMACEUTICALS LLC-ES-2018VAL000427

PATIENT
  Sex: Female

DRUGS (6)
  1. BETAMETHASONE. [Suspect]
     Active Substance: BETAMETHASONE
     Indication: MATERNAL THERAPY TO ENHANCE FOETAL LUNG MATURITY
     Dosage: 2 DF, QOD; DOSE 12 MG
     Route: 064
  2. CINACALCET HYDROCHLORIDE. [Suspect]
     Active Substance: CINACALCET HYDROCHLORIDE
     Indication: HYPERPARATHYROIDISM PRIMARY
  3. CALCITONIN, SALMON [Suspect]
     Active Substance: CALCITONIN SALMON
     Indication: HYPERCALCAEMIA
     Dosage: 100 IU, Q6H
     Route: 064
  4. CALCITONIN, SALMON [Suspect]
     Active Substance: CALCITONIN SALMON
     Indication: HYPERPARATHYROIDISM PRIMARY
  5. FUROSEMIDE. [Suspect]
     Active Substance: FUROSEMIDE
     Indication: HYPERPARATHYROIDISM PRIMARY
     Dosage: UNK, Q8H
     Route: 064
  6. CINACALCET HYDROCHLORIDE. [Suspect]
     Active Substance: CINACALCET HYDROCHLORIDE
     Indication: HYPERCALCAEMIA
     Dosage: UNK
     Route: 064

REACTIONS (8)
  - Neonatal hypocalcaemia [Recovered/Resolved]
  - Foetal heart rate deceleration abnormality [Unknown]
  - Bilirubin conjugated increased [Unknown]
  - Low birth weight baby [Unknown]
  - Jaundice neonatal [Recovered/Resolved]
  - Foetal growth restriction [Unknown]
  - Neonatal cholestasis [Recovered/Resolved]
  - Foetal exposure during pregnancy [Unknown]
